FAERS Safety Report 4329034-2 (Version None)
Quarter: 2004Q1

REPORT INFORMATION
  Report Type: 
  Country: None (occurrence: None)
  Receive Date: 20040329
  Receipt Date: 20031211
  Transmission Date: 20041129
  Serious: No
  Sender: FDA-Public Use
  Company Number: 03P-163-0244692-00

PATIENT
  Age: 82 Year
  Sex: Female

DRUGS (9)
  1. HUMIRA [Suspect]
     Dosage: 40 MG, 1 IN 2 WK, SUBCUTANEOUS
     Route: 058
     Dates: start: 20030415, end: 20031023
  2. PREDNISONE [Concomitant]
  3. AXOTAL [Concomitant]
  4. CALCIUM [Concomitant]
  5. ERGOCALCIFEROL [Concomitant]
  6. ESTROGENS CONJUGATED [Concomitant]
  7. METOPROLOL SUCCINATE [Concomitant]
  8. TOCOPHEROL CONCENTRATE CAP [Concomitant]
  9. ESOMEPRAZOLE [Concomitant]

REACTIONS (2)
  - CYSTITIS [None]
  - HERPES VIRUS INFECTION [None]
